FAERS Safety Report 24133739 (Version 2)
Quarter: 2024Q3

REPORT INFORMATION
  Report Type: Spontaneous
  Country: CA (occurrence: CA)
  Receive Date: 20240724
  Receipt Date: 20240730
  Transmission Date: 20241017
  Serious: Yes (Hospitalization, Other)
  Sender: ELI LILLY AND CO
  Company Number: CA-ELI_LILLY_AND_COMPANY-CA202407014657

PATIENT
  Age: 65 Year
  Sex: Female

DRUGS (5)
  1. DULOXETINE HYDROCHLORIDE [Suspect]
     Active Substance: DULOXETINE HYDROCHLORIDE
     Indication: Depression
     Dosage: 60 MG, UNKNOWN
     Route: 065
  2. DULOXETINE HYDROCHLORIDE [Suspect]
     Active Substance: DULOXETINE HYDROCHLORIDE
     Indication: Anxiety
  3. DIAZEPAM [Suspect]
     Active Substance: DIAZEPAM
     Indication: Depression
     Dosage: 5 MG, DAILY
     Route: 065
     Dates: start: 2017
  4. DIAZEPAM [Suspect]
     Active Substance: DIAZEPAM
     Indication: Anxiety
  5. CANNABIS SATIVA SUBSP. INDICA TOP [Suspect]
     Active Substance: CANNABIS SATIVA SUBSP. INDICA TOP
     Indication: Product used for unknown indication
     Dosage: UNK, UNKNOWN
     Route: 065

REACTIONS (4)
  - Epilepsy [Unknown]
  - Postictal psychosis [Recovered/Resolved]
  - Drug withdrawal syndrome [Unknown]
  - Product dose omission issue [Unknown]
